FAERS Safety Report 5593661-5 (Version None)
Quarter: 2008Q1

REPORT INFORMATION
  Report Type: 
  Country: None (occurrence: None)
  Receive Date: 20080116
  Receipt Date: 20071031
  Transmission Date: 20080703
  Serious: No
  Sender: FDA-Public Use
  Company Number: US-ABBOTT-07P-163-0423088-00

PATIENT
  Sex: Male
  Weight: 15.663 kg

DRUGS (5)
  1. BIAXIN [Suspect]
     Indication: EAR INFECTION
     Route: 048
     Dates: start: 20071013, end: 20071019
  2. OMNICEF [Suspect]
     Indication: EAR INFECTION
     Route: 048
     Dates: start: 20071025, end: 20071027
  3. FAMOTIDINE [Concomitant]
     Indication: GASTROOESOPHAGEAL REFLUX DISEASE
     Route: 048
     Dates: start: 20070801, end: 20070901
  4. FAMOTIDINE [Concomitant]
     Indication: EOSINOPHIL COUNT
  5. PROBIOTICS [Concomitant]
     Indication: ANTIFUNGAL PROPHYLAXIS
     Route: 048
     Dates: start: 20071019, end: 20071021

REACTIONS (8)
  - DERMATITIS DIAPER [None]
  - DIARRHOEA [None]
  - DRUG INEFFECTIVE [None]
  - PHARYNGITIS STREPTOCOCCAL [None]
  - PSYCHOMOTOR HYPERACTIVITY [None]
  - PYREXIA [None]
  - TOOTH DISCOLOURATION [None]
  - URTICARIA [None]
